FAERS Safety Report 16967948 (Version 1)
Quarter: 2019Q4

REPORT INFORMATION
  Report Type: Spontaneous
  Country: MX (occurrence: MX)
  Receive Date: 20191028
  Receipt Date: 20191028
  Transmission Date: 20200122
  Serious: Yes (Hospitalization)
  Sender: FDA-Public Use
  Company Number: MX-AKRON, INC.-2076088

PATIENT
  Age: 54 Year
  Sex: Female

DRUGS (3)
  1. CLINDAMYCIN. [Concomitant]
     Active Substance: CLINDAMYCIN
  2. ACYCLOVIR ORAL SUSPENSION [Suspect]
     Active Substance: ACYCLOVIR
     Indication: TOOTH ABSCESS
     Route: 048
  3. DICLOXACILLIN SODIUM. [Concomitant]
     Active Substance: DICLOXACILLIN SODIUM

REACTIONS (2)
  - Hypokalaemia [Recovering/Resolving]
  - Renal tubular necrosis [Recovering/Resolving]
